FAERS Safety Report 15201862 (Version 1)
Quarter: 2018Q3

REPORT INFORMATION
  Report Type: Spontaneous
  Country: US (occurrence: US)
  Receive Date: 20180726
  Receipt Date: 20180726
  Transmission Date: 20181010
  Serious: Yes (Other)
  Sender: FDA-Public Use
  Company Number: US-GLAXOSMITHKLINE-US2018130225

PATIENT

DRUGS (1)
  1. SENSODYNE RAPID RELIEF [Suspect]
     Active Substance: STANNOUS FLUORIDE
     Indication: SENSITIVITY OF TEETH
     Dosage: UNK

REACTIONS (5)
  - Ageusia [Not Recovered/Not Resolved]
  - Drug ineffective [Unknown]
  - Oral discomfort [Unknown]
  - Oral pain [Recovering/Resolving]
  - Stomatitis [Not Recovered/Not Resolved]
